FAERS Safety Report 13560652 (Version 1)
Quarter: 2017Q2

REPORT INFORMATION
  Report Type: Spontaneous
  Country: US (occurrence: US)
  Receive Date: 20170518
  Receipt Date: 20170518
  Transmission Date: 20170830
  Serious: No
  Sender: FDA-Public Use
  Company Number: US-ROCHE-766738

PATIENT
  Sex: Female
  Weight: 77.1 kg

DRUGS (2)
  1. ACETYLSALICYLIC ACID [Concomitant]
     Active Substance: ASPIRIN
     Route: 065
  2. ALEVE [Suspect]
     Active Substance: NAPROXEN SODIUM
     Indication: ARTHRALGIA
     Dosage: DOSE: IRR, BOTTLE COUNT 40CT, NAME: ALEVE GELCAP
     Route: 048

REACTIONS (1)
  - Arthralgia [Not Recovered/Not Resolved]
